FAERS Safety Report 7978679-7 (Version None)
Quarter: 2011Q4

REPORT INFORMATION
  Report Type: 
  Country: None (occurrence: None)
  Receive Date: 20111202
  Receipt Date: 20111121
  Transmission Date: 20120403
  Serious: Yes (Death, Hospitalization)
  Sender: FDA-Public Use
  Company Number: DSA_47895_2011

PATIENT
  Age: 53 Year
  Sex: Male

DRUGS (2)
  1. PROPRANOLOL [Suspect]
     Indication: PRODUCT USED FOR UNKNOWN INDICATION
     Dosage: (ONE-MONTH SUPPLY TAKEN AT ONCE; NOT THE PRESCRIBED AMOUNT)
  2. DILTIAZEM HCL [Suspect]
     Indication: PRODUCT USED FOR UNKNOWN INDICATION
     Dosage: (ONE-MONTH SUPPLY TAKEN AT ONCE; NOT THE PRESCRIBED AMOUNT)

REACTIONS (6)
  - CARDIAC ARREST [None]
  - MULTI-ORGAN FAILURE [None]
  - HYPOTENSION [None]
  - DRUG INTERACTION [None]
  - OVERDOSE [None]
  - BRADYCARDIA [None]
